FAERS Safety Report 10219137 (Version 1)
Quarter: 2014Q2

REPORT INFORMATION
  Report Type: Spontaneous
  Country: BG (occurrence: BG)
  Receive Date: 20140605
  Receipt Date: 20140605
  Transmission Date: 20141212
  Serious: Yes (Hospitalization)
  Sender: FDA-Public Use
  Company Number: PHHY2014BG068011

PATIENT
  Age: 53 Year
  Sex: Male

DRUGS (2)
  1. CLONAZEPAM [Suspect]
  2. METHANOL [Suspect]

REACTIONS (6)
  - Suicide attempt [Unknown]
  - Neurotoxicity [Unknown]
  - Loss of consciousness [Unknown]
  - Acidosis [Recovering/Resolving]
  - Base excess decreased [Recovering/Resolving]
  - Blood pH decreased [Recovering/Resolving]
